FAERS Safety Report 9052326 (Version 1)
Quarter: 2013Q1

REPORT INFORMATION
  Report Type: Spontaneous
  Country: IT (occurrence: IT)
  Receive Date: 20130206
  Receipt Date: 20130206
  Transmission Date: 20140127
  Serious: Yes (Hospitalization)
  Sender: FDA-Public Use
  Company Number: IT-FRI-1000042383

PATIENT
  Age: 49 None
  Sex: Female

DRUGS (5)
  1. NEBIVOLOL [Suspect]
     Route: 048
     Dates: start: 20130111, end: 20130111
  2. DEPAKIN [Suspect]
     Dates: start: 20130111, end: 20130111
  3. DELAPRIDE [Suspect]
     Route: 048
     Dates: start: 20130111, end: 20130111
  4. CIPROXIN [Suspect]
     Route: 048
     Dates: start: 20130111, end: 20130111
  5. RIVOTRIL [Concomitant]
     Indication: DEPRESSION

REACTIONS (5)
  - Intentional overdose [Recovered/Resolved]
  - Coma scale abnormal [Recovered/Resolved]
  - Disorientation [Recovered/Resolved]
  - Sopor [Recovered/Resolved]
  - Hypotension [Recovered/Resolved]
